FAERS Safety Report 10955876 (Version 1)
Quarter: 2015Q1

REPORT INFORMATION
  Report Type: Spontaneous
  Country: FR (occurrence: FR)
  Receive Date: 20150326
  Receipt Date: 20150326
  Transmission Date: 20150721
  Serious: Yes (Other)
  Sender: FDA-Public Use
  Company Number: FR-MYLANLABS-2015M1009547

PATIENT

DRUGS (4)
  1. IOMEPROL [Suspect]
     Active Substance: IOMEPROL
     Route: 065
  2. NIMODIPINE. [Suspect]
     Active Substance: NIMODIPINE
     Route: 065
  3. IODIXANOL [Suspect]
     Active Substance: IODIXANOL
     Route: 065
  4. LEVETIRACETAM. [Suspect]
     Active Substance: LEVETIRACETAM
     Route: 065

REACTIONS (1)
  - Acute generalised exanthematous pustulosis [Unknown]
